FAERS Safety Report 8395950-8 (Version None)
Quarter: 2012Q2

REPORT INFORMATION
  Report Type: 
  Country: None (occurrence: None)
  Receive Date: 20120530
  Receipt Date: 20120524
  Transmission Date: 20120825
  Serious: Yes (Hospitalization)
  Sender: FDA-Public Use
  Company Number: IT-ROCHE-1072261

PATIENT
  Sex: Female

DRUGS (1)
  1. MABTHERA [Suspect]
     Indication: NON-HODGKIN'S LYMPHOMA
     Route: 042
     Dates: start: 20120216, end: 20120216

REACTIONS (4)
  - HYPERTENSIVE CRISIS [None]
  - INTESTINAL OBSTRUCTION [None]
  - TACHYARRHYTHMIA [None]
  - GASTROINTESTINAL HYPOMOTILITY [None]
